FAERS Safety Report 5373637-3 (Version None)
Quarter: 2007Q2

REPORT INFORMATION
  Report Type: 
  Country: None (occurrence: None)
  Receive Date: 20070627
  Receipt Date: 20060928
  Transmission Date: 20071010
  Serious: Yes (Death, Hospitalization)
  Sender: FDA-Public Use
  Company Number: 418579

PATIENT
  Age: 41 Year
  Sex: Male
  Weight: 64.9 kg

DRUGS (3)
  1. XELODA [Suspect]
     Indication: COLORECTAL CANCER
     Dosage: 2500 MG DAILY 2 PER DAY ORAL
     Route: 048
     Dates: start: 20050615, end: 20050817
  2. OXALIPLATIN [Concomitant]
  3. AVASTIN [Concomitant]

REACTIONS (1)
  - COLORECTAL CANCER STAGE IV [None]
